FAERS Safety Report 6432013-2 (Version None)
Quarter: 2009Q4

REPORT INFORMATION
  Report Type: 
  Country: None (occurrence: None)
  Receive Date: 20091109
  Receipt Date: 20091029
  Transmission Date: 20100525
  Serious: Yes (Hospitalization)
  Sender: FDA-Public Use
  Company Number: US-JNJFOC-20091009284

PATIENT
  Sex: Male

DRUGS (4)
  1. REMICADE [Suspect]
     Route: 042
     Dates: start: 20090910, end: 20091026
  2. REMICADE [Suspect]
     Route: 042
     Dates: start: 20090910, end: 20091026
  3. REMICADE [Suspect]
     Indication: CROHN'S DISEASE
     Route: 042
     Dates: start: 20090910, end: 20091026
  4. COUMADIN [Concomitant]
     Indication: THROMBOSIS

REACTIONS (2)
  - CROHN'S DISEASE [None]
  - THROMBOSIS [None]
